FAERS Safety Report 10099515 (Version 3)
Quarter: 2014Q2

REPORT INFORMATION
  Report Type: Spontaneous
  Country: JP (occurrence: JP)
  Receive Date: 20140423
  Receipt Date: 20140527
  Transmission Date: 20141212
  Serious: No
  Sender: FDA-Public Use
  Company Number: JP-ASTRAZENECA-2014SE18150

PATIENT
  Age: 81 Year
  Sex: Male
  Weight: 52 kg

DRUGS (12)
  1. NEXIUM [Suspect]
     Indication: GASTROOESOPHAGEAL REFLUX DISEASE
     Route: 048
     Dates: start: 20140308, end: 20140309
  2. RESTREAM OD [Concomitant]
     Indication: BENIGN PROSTATIC HYPERPLASIA
     Route: 048
  3. MUCOTRON [Concomitant]
     Indication: ASTHMA
     Route: 048
  4. URSO [Concomitant]
     Indication: LIVER DISORDER
     Route: 048
  5. FUROSEMIDE [Concomitant]
     Indication: CARDIAC FAILURE CHRONIC
     Route: 048
  6. RIZE [Concomitant]
     Indication: ANXIETY DISORDER
     Route: 048
  7. MAGMITT [Concomitant]
     Indication: CONSTIPATION
     Route: 048
  8. TULOBUTEROL:TAPE HMT [Concomitant]
     Indication: ASTHMA
     Route: 062
  9. PATELL [Concomitant]
     Indication: BACK PAIN
     Route: 062
  10. OPALMON [Concomitant]
     Indication: SPINAL OSTEOARTHRITIS
     Route: 048
  11. ROCEPHIN [Concomitant]
     Indication: PNEUMONIA
     Route: 041
     Dates: start: 20140227, end: 20140306
  12. ROCEPHIN [Concomitant]
     Indication: PNEUMONIA
     Route: 041
     Dates: start: 20140307, end: 20140310

REACTIONS (1)
  - Drug eruption [Recovered/Resolved]
